FAERS Safety Report 12571026 (Version 1)
Quarter: 2016Q3

REPORT INFORMATION
  Report Type: Report from Study
  Country: US (occurrence: US)
  Receive Date: 20160719
  Receipt Date: 20160719
  Transmission Date: 20161109
  Serious: Yes (Other)
  Sender: FDA-Public Use
  Company Number: US-AMGEN-USASL2016091275

PATIENT
  Age: 57 Year
  Sex: Male

DRUGS (3)
  1. ENBREL [Suspect]
     Active Substance: ETANERCEPT
     Dosage: UNK, QWK
     Route: 065
     Dates: start: 20160713
  2. ENBREL [Suspect]
     Active Substance: ETANERCEPT
     Indication: RHEUMATOID ARTHRITIS
     Dosage: UNK
     Route: 065
  3. ENBREL [Suspect]
     Active Substance: ETANERCEPT
     Dosage: UNK
     Route: 065

REACTIONS (11)
  - Pain [Not Recovered/Not Resolved]
  - Adverse drug reaction [Unknown]
  - Feeling abnormal [Unknown]
  - Neck pain [Unknown]
  - Musculoskeletal discomfort [Recovering/Resolving]
  - Condition aggravated [Unknown]
  - Back pain [Unknown]
  - Intentional product misuse [Unknown]
  - Mobility decreased [Unknown]
  - Inappropriate schedule of drug administration [Unknown]
  - Bunion operation [Unknown]

NARRATIVE: CASE EVENT DATE: 2013
